FAERS Safety Report 9466417 (Version 1)
Quarter: 2013Q3

REPORT INFORMATION
  Report Type: Spontaneous
  Country: US (occurrence: US)
  Receive Date: 20130820
  Receipt Date: 20130820
  Transmission Date: 20140515
  Serious: No
  Sender: FDA-Public Use
  Company Number: US-009507513-1308USA006159

PATIENT
  Age: 68 Year
  Sex: Male

DRUGS (4)
  1. LOTRISONE [Suspect]
     Indication: BALANITIS CANDIDA
     Route: 061
  2. BETAMETHASONE DIPROPIONATE (+) CLIOQUINOL [Suspect]
     Indication: BALANITIS CANDIDA
     Route: 061
  3. CIPROFLOXACIN [Concomitant]
     Route: 061
  4. CORTICOSTEROIDS (UNSPECIFIED) [Concomitant]

REACTIONS (1)
  - Drug ineffective [Unknown]
